FAERS Safety Report 14677540 (Version 1)
Quarter: 2018Q1

REPORT INFORMATION
  Report Type: Spontaneous
  Country: US (occurrence: US)
  Receive Date: 20180324
  Receipt Date: 20180324
  Transmission Date: 20180509
  Serious: No
  Sender: FDA-Public Use
  Company Number: None

PATIENT
  Age: 65 Year
  Sex: Female
  Weight: 54.88 kg

DRUGS (2)
  1. SIMVASTATIN /EZETIMBE 10/40MG [Suspect]
     Active Substance: EZETIMIBE\SIMVASTATIN
     Indication: BLOOD CHOLESTEROL ABNORMAL
     Dosage: 10/40MG 1 DAILY PO
     Route: 048
     Dates: start: 20171101
  2. SIMVASTATIN /EZETIMBE 10/40MG [Suspect]
     Active Substance: EZETIMIBE\SIMVASTATIN
     Indication: BLOOD TRIGLYCERIDES ABNORMAL
     Dosage: 10/40MG 1 DAILY PO
     Route: 048
     Dates: start: 20171101

REACTIONS (1)
  - Nausea [None]

NARRATIVE: CASE EVENT DATE: 20171101
